FAERS Safety Report 25844088 (Version 1)
Quarter: 2025Q3

REPORT INFORMATION
  Report Type: Other
  Country: US (occurrence: US)
  Receive Date: 20250925
  Receipt Date: 20250925
  Transmission Date: 20251020
  Serious: Yes (Hospitalization, Other)
  Sender: APPCO PHARMA LLC
  Company Number: US-Appco Pharma LLC-2185250

PATIENT
  Age: 29 Year
  Sex: Male

DRUGS (9)
  1. CHLORPROMAZINE [Suspect]
     Active Substance: CHLORPROMAZINE
     Indication: Agitation
  2. CLOZAPINE [Suspect]
     Active Substance: CLOZAPINE
  3. SENNA [Suspect]
     Active Substance: SENNOSIDES
  4. POLYETHYLENE GLYCOL (POLYETHYLENE GLYCOL 3350) [Suspect]
     Active Substance: POLYETHYLENE GLYCOL 3350
  5. OLANZAPINE [Suspect]
     Active Substance: OLANZAPINE
  6. ISAVUCONAZOLE [Suspect]
     Active Substance: ISAVUCONAZOLE
  7. GLYCOPYRROLATE [Suspect]
     Active Substance: GLYCOPYRROLATE
  8. DOCUSATE SODIUM [Suspect]
     Active Substance: DOCUSATE SODIUM
  9. DEXMEDETOMIDINE [Suspect]
     Active Substance: DEXMEDETOMIDINE

REACTIONS (3)
  - Respiratory failure [Unknown]
  - Aspiration [Unknown]
  - Sedation [Unknown]
